FAERS Safety Report 4978107-X (Version None)
Quarter: 2006Q2

REPORT INFORMATION
  Report Type: 
  Country: None (occurrence: None)
  Receive Date: 20060420
  Receipt Date: 20060413
  Transmission Date: 20061013
  Serious: Yes (Death)
  Sender: FDA-Public Use
  Company Number: KR-SANOFI-SYNTHELABO-A01200602899

PATIENT
  Sex: Male
  Weight: 45 kg

DRUGS (8)
  1. ELOXATIN [Suspect]
     Indication: GASTRIC CANCER
     Route: 042
     Dates: start: 20051015, end: 20051015
  2. FLUOROURACIL [Concomitant]
     Indication: GASTRIC CANCER
     Dosage: 1400 MG/M2/DAY
     Route: 042
     Dates: start: 20051015, end: 20051015
  3. FERBON [Concomitant]
     Indication: GASTRIC CANCER
     Route: 042
     Dates: start: 20051015, end: 20051015
  4. MORPHINE [Concomitant]
     Route: 042
     Dates: start: 20051012, end: 20051021
  5. MAGNESIUM HYDROXIDE TAB [Concomitant]
     Route: 048
     Dates: start: 20051013, end: 20051017
  6. DUPHALAC [Concomitant]
     Route: 048
     Dates: start: 20051013, end: 20051001
  7. MOSAPRIDE CITRATE [Concomitant]
     Route: 048
     Dates: start: 20051015, end: 20051017
  8. POLYSTYRENE SULFONATE CALCIUM [Concomitant]
     Indication: HYPERKALAEMIA
     Route: 054
     Dates: start: 20051015, end: 20051017

REACTIONS (6)
  - ALANINE AMINOTRANSFERASE INCREASED [None]
  - ASPARTATE AMINOTRANSFERASE INCREASED [None]
  - BLOOD BILIRUBIN INCREASED [None]
  - HEPATIC FUNCTION ABNORMAL [None]
  - HYPERKALAEMIA [None]
  - PNEUMONIA [None]
